FAERS Safety Report 11818068 (Version 1)
Quarter: 2015Q4

REPORT INFORMATION
  Report Type: Spontaneous
  Country: US (occurrence: None)
  Receive Date: 20151209
  Receipt Date: 20151209
  Transmission Date: 20160305
  Serious: No
  Sender: FDA-Public Use
  Company Number: None

PATIENT
  Age: 57 Year
  Sex: Female

DRUGS (2)
  1. HUMIRA [Suspect]
     Active Substance: ADALIMUMAB
     Indication: PSORIATIC ARTHROPATHY
     Dosage: HUMIRA 40MG/0.8ML WEEKLY SUBCUTANEOUSLY
     Route: 058
     Dates: start: 20070126, end: 20150212
  2. HUMIRA [Suspect]
     Active Substance: ADALIMUMAB
     Indication: PSORIASIS
     Dosage: HUMIRA 40MG/0.8ML WEEKLY SUBCUTANEOUSLY
     Route: 058
     Dates: start: 20070126, end: 20150212

REACTIONS (2)
  - Pneumonia [None]
  - Immune system disorder [None]

NARRATIVE: CASE EVENT DATE: 201502
